FAERS Safety Report 5502404-2 (Version None)
Quarter: 2007Q4

REPORT INFORMATION
  Report Type: 
  Country: None (occurrence: None)
  Receive Date: 20071030
  Receipt Date: 20071018
  Transmission Date: 20080405
  Serious: Yes (Death)
  Sender: FDA-Public Use
  Company Number: DE-PFIZER INC-2007089219

PATIENT
  Sex: Female
  Weight: 63 kg

DRUGS (1)
  1. FARMORUBICIN RD [Suspect]
     Indication: BREAST CANCER
     Dosage: DAILY DOSE:200MG
     Route: 042

REACTIONS (1)
  - MYOCARDIAL INFARCTION [None]
